FAERS Safety Report 20698774 (Version 1)
Quarter: 2022Q2

REPORT INFORMATION
  Report Type: Spontaneous
  Country: US (occurrence: US)
  Receive Date: 20220412
  Receipt Date: 20220412
  Transmission Date: 20220721
  Serious: No
  Sender: FDA-Public Use
  Company Number: US-BION-009792

PATIENT

DRUGS (1)
  1. ALEVE [Suspect]
     Active Substance: NAPROXEN SODIUM
     Indication: Pain
     Dosage: 1 EVERY 5 HOURS
     Route: 048

REACTIONS (2)
  - Drug effective for unapproved indication [Not Recovered/Not Resolved]
  - Incorrect product administration duration [Not Recovered/Not Resolved]
